FAERS Safety Report 6935755-5 (Version None)
Quarter: 2010Q3

REPORT INFORMATION
  Report Type: 
  Country: None (occurrence: None)
  Receive Date: 20100819
  Receipt Date: 20100819
  Transmission Date: 20110219
  Serious: Yes (Hospitalization)
  Sender: FDA-Public Use
  Company Number: None

PATIENT

DRUGS (2)
  1. DIVALPROEX SODIUM [Suspect]
  2. DIVALPROEX SODIUM [Suspect]

REACTIONS (2)
  - INTERCEPTED DRUG DISPENSING ERROR [None]
  - MEDICATION ERROR [None]
